FAERS Safety Report 8202832-0 (Version None)
Quarter: 2012Q1

REPORT INFORMATION
  Report Type: 
  Country: None (occurrence: None)
  Receive Date: 20120312
  Receipt Date: 20120312
  Transmission Date: 20120608
  Serious: Yes (Death, Hospitalization)
  Sender: FDA-Public Use
  Company Number: None

PATIENT
  Age: 89 Year
  Sex: Male
  Weight: 62.1 kg

DRUGS (2)
  1. TEMSIROLIMUS [Concomitant]
     Dosage: 20 MG
     Route: 042
  2. BORTEZOMIB [Suspect]
     Indication: DIFFUSE LARGE B-CELL LYMPHOMA RECURRENT
     Dosage: 2.2 MG
     Route: 042
     Dates: start: 20110607, end: 20110726

REACTIONS (8)
  - ATRIAL FIBRILLATION [None]
  - ASTHENIA [None]
  - CELLULITIS [None]
  - PNEUMONIA [None]
  - DIFFUSE LARGE B-CELL LYMPHOMA RECURRENT [None]
  - NEOPLASM PROGRESSION [None]
  - INTERNATIONAL NORMALISED RATIO INCREASED [None]
  - GASTROINTESTINAL HAEMORRHAGE [None]
